FAERS Safety Report 7982330-X (Version None)
Quarter: 2011Q4

REPORT INFORMATION
  Report Type: 
  Country: None (occurrence: None)
  Receive Date: 20111215
  Receipt Date: 20111201
  Transmission Date: 20120403
  Serious: Yes (Hospitalization, Disabling, Other)
  Sender: FDA-Public Use
  Company Number: PHHY2011CA79645

PATIENT
  Sex: Female

DRUGS (7)
  1. CLOPICOL LA [Concomitant]
     Dosage: 200 MG, UNK
  2. SUSTENNA [Concomitant]
     Dosage: 75 MG, UNK
     Route: 030
  3. CLOZARIL [Suspect]
     Indication: SCHIZOPHRENIA
     Dosage: 200 MG/ DAY
     Route: 048
     Dates: start: 20080425, end: 20110902
  4. CLONAZEPAM [Concomitant]
     Dosage: 0.5 UKN, BID
  5. SEROQUEL [Concomitant]
     Dosage: 400 MG, DAILY
  6. CLOZARIL [Suspect]
     Dosage: 150 UKN, UNK
     Route: 048
  7. LUVOX [Concomitant]
     Dosage: 50 MG, QHS

REACTIONS (4)
  - CARDIOMYOPATHY [None]
  - SYNCOPE [None]
  - EJECTION FRACTION DECREASED [None]
  - HYPOTENSION [None]
